FAERS Safety Report 5074591-4 (Version None)
Quarter: 2006Q3

REPORT INFORMATION
  Report Type: 
  Country: None (occurrence: None)
  Receive Date: 20060808
  Receipt Date: 20060214
  Transmission Date: 20061208
  Serious: No
  Sender: FDA-Public Use
  Company Number: US-AMGEN-KDL169333

PATIENT
  Sex: Male
  Weight: 56.8 kg

DRUGS (8)
  1. PROCRIT [Suspect]
     Indication: RENAL FAILURE CHRONIC
     Dates: start: 20050901
  2. ARICEPT [Concomitant]
  3. FOLIC ACID [Concomitant]
  4. LASIX [Concomitant]
  5. AMIODARONE HCL [Concomitant]
  6. DIGOXIN [Concomitant]
  7. NITROGLYCERIN [Concomitant]
  8. IRON [Concomitant]

REACTIONS (3)
  - BACK PAIN [None]
  - MALAISE [None]
  - URINARY INCONTINENCE [None]
